FAERS Safety Report 8996976 (Version 2)
Quarter: 2013Q1

REPORT INFORMATION
  Report Type: Spontaneous
  Country: US (occurrence: None)
  Receive Date: 20121221
  Receipt Date: 20130123
  Transmission Date: 20140127
  Serious: Yes (Hospitalization)
  Sender: FDA-Public Use
  Company Number: 20120735

PATIENT
  Age: 31 Year
  Sex: Female
  Weight: 50 kg

DRUGS (3)
  1. VENOFER [Suspect]
     Indication: HAEMORRHAGE
     Dosage: 300MG IN NAC1 OVER, 90 MIN INTRAVENOUS DRIP
     Route: 041
     Dates: start: 20120913, end: 20120913
  2. AMPICILLIN [Concomitant]
     Route: 042
     Dates: start: 20120912, end: 20120912
  3. IBUPROFEN [Concomitant]
     Route: 048
     Dates: start: 20120912, end: 20120912

REACTIONS (4)
  - Local swelling [None]
  - Urticaria [None]
  - Off label use [None]
  - Pruritus [None]
